FAERS Safety Report 12856771 (Version 1)
Quarter: 2016Q4

REPORT INFORMATION
  Report Type: Spontaneous
  Country: US (occurrence: US)
  Receive Date: 20161017
  Receipt Date: 20161017
  Transmission Date: 20170207
  Serious: No
  Sender: FDA-Public Use
  Company Number: None

PATIENT
  Age: 59 Year
  Sex: Female
  Weight: 54 kg

DRUGS (11)
  1. SERMORELIN ACETATE/GHRP (2)+(6) [Suspect]
     Active Substance: GHRP-6\PRALMORELIN\SERMORELIN ACETATE
     Indication: FATIGUE
     Dosage: 84 INJECTION(S) OTHER AT BEDTIME SUBCUTANEOUS
     Route: 058
     Dates: start: 20160614, end: 20160825
  2. VITAMIN D3 [Concomitant]
     Active Substance: CHOLECALCIFEROL
  3. PREMARIN [Concomitant]
     Active Substance: ESTROGENS, CONJUGATED
  4. SERMORELIN ACETATE/GHRP (2)+(6) [Suspect]
     Active Substance: GHRP-6\PRALMORELIN\SERMORELIN ACETATE
     Indication: PRODUCT USED FOR UNKNOWN INDICATION
     Dosage: 84 INJECTION(S) OTHER AT BEDTIME SUBCUTANEOUS
     Route: 058
     Dates: start: 20160614, end: 20160825
  5. LEXAPRO [Concomitant]
     Active Substance: ESCITALOPRAM OXALATE
  6. SERMORELIN ACETATE/GHRP (2)+(6) [Suspect]
     Active Substance: GHRP-6\PRALMORELIN\SERMORELIN ACETATE
     Indication: DEPRESSION
     Dosage: 84 INJECTION(S) OTHER AT BEDTIME SUBCUTANEOUS
     Route: 058
     Dates: start: 20160614, end: 20160825
  7. VITAMINS NOS [Concomitant]
     Active Substance: VITAMINS
  8. SERMORELIN ACETATE/GHRP (2)+(6) [Suspect]
     Active Substance: GHRP-6\PRALMORELIN\SERMORELIN ACETATE
     Indication: ALOPECIA
     Dosage: 84 INJECTION(S) OTHER AT BEDTIME SUBCUTANEOUS
     Route: 058
     Dates: start: 20160614, end: 20160825
  9. FISH OIL [Concomitant]
     Active Substance: FISH OIL
  10. SYNTHROID [Concomitant]
     Active Substance: LEVOTHYROXINE SODIUM
  11. STRESS B VITAMINS [Concomitant]

REACTIONS (3)
  - Burning sensation [None]
  - Pain [None]
  - Pyrexia [None]

NARRATIVE: CASE EVENT DATE: 20160817
